FAERS Safety Report 24947422 (Version 1)
Quarter: 2025Q1

REPORT INFORMATION
  Report Type: Spontaneous
  Country: US (occurrence: US)
  Receive Date: 20250210
  Receipt Date: 20250210
  Transmission Date: 20250408
  Serious: Yes (Other)
  Sender: DR REDDYS
  Company Number: US-DRL-USA-USA/2025/01/001749

PATIENT
  Age: 82 Year
  Sex: Female

DRUGS (2)
  1. TETRABENAZINE [Suspect]
     Active Substance: TETRABENAZINE
     Indication: Choreoathetosis
     Dosage: 12.5 MG PO TID
     Route: 048
  2. TETRABENAZINE [Suspect]
     Active Substance: TETRABENAZINE
     Indication: Dystonia

REACTIONS (4)
  - Drug ineffective for unapproved indication [Unknown]
  - Sedation [Unknown]
  - Drug intolerance [Unknown]
  - Product dose omission issue [Unknown]
